FAERS Safety Report 4313602-8 (Version None)
Quarter: 2004Q1

REPORT INFORMATION
  Report Type: 
  Country: None (occurrence: None)
  Receive Date: 20040305
  Receipt Date: 20040219
  Transmission Date: 20041129
  Serious: Yes (Death)
  Sender: FDA-Public Use
  Company Number: 163-20785-03100232

PATIENT
  Age: 85 Year
  Sex: Male
  Weight: 73.0291 kg

DRUGS (7)
  1. THALOMIDE (THALIDOMIDE) (50 MILLIGRAM, CAPSULES) [Suspect]
     Indication: MYELODYSPLASTIC SYNDROME
     Dosage: 50 MG, DAILY, ORAL
     Route: 048
     Dates: start: 20030909, end: 20031121
  2. ASPIRIN [Concomitant]
  3. SYNTHROID [Concomitant]
  4. BLOOD TRANSFUSIONS (BLOOD CELLS, PACKED HUMAN) [Concomitant]
  5. PROCRIT (ERYTHROPOIETIN) [Concomitant]
  6. MEDROL [Concomitant]
  7. THORAZINE [Concomitant]

REACTIONS (9)
  - FEELING ABNORMAL [None]
  - JOINT SWELLING [None]
  - LEUKAEMIA [None]
  - MALIGNANT NEOPLASM PROGRESSION [None]
  - OEDEMA PERIPHERAL [None]
  - PITTING OEDEMA [None]
  - PRURITUS [None]
  - RASH [None]
  - SKIN DISCOLOURATION [None]
